FAERS Safety Report 7006263-0 (Version None)
Quarter: 2010Q3

REPORT INFORMATION
  Report Type: 
  Country: None (occurrence: None)
  Receive Date: 20100921
  Receipt Date: 20100907
  Transmission Date: 20110219
  Serious: No
  Sender: FDA-Public Use
  Company Number: US-PFIZER INC-2010113650

PATIENT
  Sex: Female
  Weight: 64 kg

DRUGS (2)
  1. ARTHROTEC [Suspect]
     Indication: ARTHRITIS
     Dosage: 75MG/200MCG, 1X/DAY
     Route: 048
  2. ARTHROTEC [Suspect]
     Dosage: 75MG/200MCG, 2X/DAY
     Route: 048

REACTIONS (1)
  - TABLET ISSUE [None]
